FAERS Safety Report 6223695-9 (Version None)
Quarter: 2009Q2

REPORT INFORMATION
  Report Type: 
  Country: None (occurrence: None)
  Receive Date: 20090611
  Receipt Date: 20090501
  Transmission Date: 20091009
  Serious: No
  Sender: FDA-Public Use
  Company Number: US-ABBOTT-08P-163-0494249-00

PATIENT
  Sex: Female
  Weight: 56.75 kg

DRUGS (4)
  1. HUMIRA [Suspect]
     Indication: CROHN'S DISEASE
     Route: 058
     Dates: start: 20081124, end: 20081124
  2. HUMIRA [Suspect]
     Dosage: DAY 15
     Route: 058
     Dates: start: 20081208, end: 20081208
  3. HUMIRA [Suspect]
     Route: 058
  4. PENTASA [Concomitant]
     Indication: CROHN'S DISEASE

REACTIONS (4)
  - ERYTHEMA [None]
  - INJECTION SITE IRRITATION [None]
  - PRURITUS [None]
  - URTICARIA [None]
